FAERS Safety Report 15815160 (Version 1)
Quarter: 2019Q1

REPORT INFORMATION
  Report Type: Spontaneous
  Country: GB (occurrence: GB)
  Receive Date: 20190112
  Receipt Date: 20190112
  Transmission Date: 20190417
  Serious: Yes (Other)
  Sender: FDA-Public Use
  Company Number: GB-ACCORD-101314

PATIENT
  Age: 21 Year
  Sex: Female
  Weight: 42.18 kg

DRUGS (2)
  1. SERTRALINE [Suspect]
     Active Substance: SERTRALINE HYDROCHLORIDE
     Indication: PRODUCT USED FOR UNKNOWN INDICATION
     Route: 048
  2. MIRENA [Concomitant]
     Active Substance: LEVONORGESTREL

REACTIONS (8)
  - Diarrhoea [Recovering/Resolving]
  - Vomiting [Recovering/Resolving]
  - Tremor [Recovered/Resolved with Sequelae]
  - Malaise [Recovered/Resolved]
  - Mydriasis [Recovering/Resolving]
  - Libido increased [Not Recovered/Not Resolved]
  - Hot flush [Not Recovered/Not Resolved]
  - Heart rate increased [Recovering/Resolving]
